FAERS Safety Report 5637121-1 (Version None)
Quarter: 2008Q1

REPORT INFORMATION
  Report Type: 
  Country: None (occurrence: None)
  Receive Date: 20080225
  Receipt Date: 20080214
  Transmission Date: 20080703
  Serious: Yes (Other)
  Sender: FDA-Public Use
  Company Number: CH-ROCHE-538334

PATIENT
  Age: 45 Year
  Sex: Male
  Weight: 68 kg

DRUGS (2)
  1. PEGASYS [Suspect]
     Dosage: FORMULATION: VIAL
     Route: 058
     Dates: start: 20070817
  2. COPEGUS [Concomitant]
     Route: 048
     Dates: start: 20070817

REACTIONS (1)
  - HYPERKERATOSIS [None]
